FAERS Safety Report 6593078-0 (Version None)
Quarter: 2010Q1

REPORT INFORMATION
  Report Type: 
  Country: None (occurrence: None)
  Receive Date: 20100212
  Receipt Date: 20100202
  Transmission Date: 20100710
  Serious: Yes (Hospitalization, Other)
  Sender: FDA-Public Use
  Company Number: 2009011944

PATIENT
  Age: 68 Year
  Sex: Female

DRUGS (10)
  1. ACTIQ [Suspect]
  2. MIDAZOLAM HCL [Suspect]
     Dates: start: 20090721
  3. PROPOFOL [Suspect]
     Dates: end: 20090721
  4. AZD4877 (ONCOLOGY STUDY DRUG)(CHEMOTHERAPEUTICS NOS) [Suspect]
     Indication: TRANSITIONAL CELL CARCINOMA
     Dosage: 2.8571 MG (20 MG, 1 IN 1 WK), INTRAVENOUS ; 3.5714 MG (25 MG, 1 IN 1 WK), INTRAVENOUS
     Route: 042
     Dates: start: 20090527
  5. IBUPROFEN TABLETS [Concomitant]
  6. OMEPRAZOLE [Concomitant]
  7. GENTAMICIN [Concomitant]
  8. ONDANSETRON [Concomitant]
  9. CHLORPHENIRAMINE MALEATE [Concomitant]
  10. TRIMETHOPRIM [Concomitant]

REACTIONS (6)
  - INFUSION SITE PAIN [None]
  - NEUTROPENIA [None]
  - PULMONARY EMBOLISM [None]
  - PYREXIA [None]
  - VEIN PAIN [None]
  - VOMITING [None]
